FAERS Safety Report 4861435-6 (Version None)
Quarter: 2005Q4

REPORT INFORMATION
  Report Type: 
  Country: None (occurrence: None)
  Receive Date: 20051220
  Receipt Date: 20051213
  Transmission Date: 20060501
  Serious: Yes (Death)
  Sender: FDA-Public Use
  Company Number: US-JNJFOC-20040501450

PATIENT
  Sex: Male
  Weight: 63.5 kg

DRUGS (3)
  1. DURAGESIC-100 [Suspect]
     Route: 062
  2. DURAGESIC-100 [Suspect]
     Route: 062
  3. FLUOXETINE [Concomitant]

REACTIONS (6)
  - ARTERIOSCLEROSIS [None]
  - CIRCULATORY COLLAPSE [None]
  - DRUG TOXICITY [None]
  - HEPATIC CIRRHOSIS [None]
  - LOSS OF CONSCIOUSNESS [None]
  - VENTRICULAR HYPERTROPHY [None]
